FAERS Safety Report 20778221 (Version 1)
Quarter: 2022Q2

REPORT INFORMATION
  Report Type: Spontaneous
  Country: US (occurrence: None)
  Receive Date: 20220502
  Receipt Date: 20220502
  Transmission Date: 20220721
  Serious: Yes (Death)
  Sender: FDA-Public Use
  Company Number: None

PATIENT
  Age: 60 Year
  Sex: Male

DRUGS (10)
  1. EPCLUSA [Suspect]
     Active Substance: SOFOSBUVIR\VELPATASVIR
     Indication: Hepatitis C
     Dosage: FREQUENCY : DAILY;?
     Route: 048
     Dates: start: 20220216, end: 20220502
  2. MULTIVITAMIN [Concomitant]
  3. KLOR-CON POWDER [Concomitant]
  4. POLYETHYLENE GLYCOL 3350 [Concomitant]
     Active Substance: POLYETHYLENE GLYCOL 3350
  5. LISINOPRIL [Concomitant]
  6. FUROSEMIDE [Concomitant]
  7. URSODIOL [Concomitant]
  8. SPIRONOLACTONE [Concomitant]
  9. OMEPRAZOLE [Concomitant]
  10. ELIQUIS [Concomitant]

REACTIONS (1)
  - Death [None]
